FAERS Safety Report 16438356 (Version 1)
Quarter: 2019Q2

REPORT INFORMATION
  Report Type: Spontaneous
  Country: US (occurrence: US)
  Receive Date: 20190617
  Receipt Date: 20190617
  Transmission Date: 20190711
  Serious: No
  Sender: FDA-Public Use
  Company Number: US-TEVA-2019-US-1065113

PATIENT
  Sex: Female

DRUGS (2)
  1. LAMOTRIGINE ACTAVIS [Suspect]
     Active Substance: LAMOTRIGINE
     Indication: TRIGEMINAL NEURALGIA
     Route: 065
  2. LAMOTRIGINE ACTAVIS [Suspect]
     Active Substance: LAMOTRIGINE
     Indication: SEIZURE
     Route: 065

REACTIONS (3)
  - Mood swings [Unknown]
  - Drug ineffective [Unknown]
  - Product substitution issue [Unknown]
